FAERS Safety Report 4995006-8 (Version None)
Quarter: 2006Q2

REPORT INFORMATION
  Report Type: 
  Country: None (occurrence: None)
  Receive Date: 20060503
  Receipt Date: 20060419
  Transmission Date: 20061013
  Serious: Yes (Death)
  Sender: FDA-Public Use
  Company Number: 200612717BWH

PATIENT
  Sex: 0

DRUGS (1)
  1. NEXAVAR [Suspect]

REACTIONS (1)
  - DEATH [None]
